FAERS Safety Report 19281812 (Version 1)
Quarter: 2021Q2

REPORT INFORMATION
  Report Type: Spontaneous
  Country: US (occurrence: US)
  Receive Date: 20210520
  Receipt Date: 20210520
  Transmission Date: 20210717
  Serious: No
  Sender: FDA-Public Use
  Company Number: US-BIOMARINAP-US-2021-136440

PATIENT
  Sex: Female
  Weight: 37.01 kg

DRUGS (1)
  1. KUVAN [Suspect]
     Active Substance: SAPROPTERIN DIHYDROCHLORIDE
     Indication: PHENYLKETONURIA
     Dosage: 700 MILLIGRAM, QD
     Route: 048

REACTIONS (4)
  - Anger [Unknown]
  - Weight increased [Unknown]
  - Skin odour abnormal [Unknown]
  - Acne [Unknown]
